FAERS Safety Report 20446099 (Version 1)
Quarter: 2022Q1

REPORT INFORMATION
  Report Type: Spontaneous
  Country: TW (occurrence: TW)
  Receive Date: 20220208
  Receipt Date: 20220208
  Transmission Date: 20220423
  Serious: Yes (Hospitalization)
  Sender: FDA-Public Use
  Company Number: TW-LUPIN PHARMACEUTICALS INC.-2022-01559

PATIENT
  Age: 19 Year
  Sex: Female

DRUGS (7)
  1. AGOMELATINE [Suspect]
     Active Substance: AGOMELATINE
     Indication: Depression
     Dosage: 50 MG, QD
     Route: 065
  2. ARIPIPRAZOLE [Suspect]
     Active Substance: ARIPIPRAZOLE
     Indication: Depression
     Dosage: 15 MG, QD
     Route: 065
  3. ESCITALOPRAM [Suspect]
     Active Substance: ESCITALOPRAM OXALATE
     Indication: Depression
     Dosage: 40 MG, QD
     Route: 065
  4. DULOXETINE [Suspect]
     Active Substance: DULOXETINE
     Indication: Depression
     Dosage: 60 MG, QD
     Route: 065
  5. FLUOXETINE [Suspect]
     Active Substance: FLUOXETINE HYDROCHLORIDE
     Indication: Depression
     Dosage: 40 MG, QD
     Route: 065
  6. OLANZAPINE [Suspect]
     Active Substance: OLANZAPINE
     Indication: Depression
     Dosage: UNK, QD (ADMINISTERED AT A GRADUALLY INCREASED DOSE TO 15 MG/DAY WITHIN 10 DAYS, QD)
     Route: 065
  7. LITHIUM [Suspect]
     Active Substance: LITHIUM
     Indication: Depression
     Dosage: 600 MG, QD
     Route: 065

REACTIONS (1)
  - Drug ineffective [Unknown]
